FAERS Safety Report 15061830 (Version 1)
Quarter: 2018Q2

REPORT INFORMATION
  Report Type: Spontaneous
  Country: ES (occurrence: ES)
  Receive Date: 20180625
  Receipt Date: 20180625
  Transmission Date: 20180711
  Serious: Yes (Other)
  Sender: FDA-Public Use
  Company Number: ES-BAYER-2018-114628

PATIENT
  Age: 52 Year
  Sex: Male

DRUGS (2)
  1. STIVARGA [Suspect]
     Active Substance: REGORAFENIB
     Dosage: 160 MG, QD (DUE TO VIRUS B)
     Dates: start: 201710
  2. NEXAVAR [Suspect]
     Active Substance: SORAFENIB
     Indication: HEPATOCELLULAR CARCINOMA
     Dosage: 400 MG, BID
     Dates: start: 201701

REACTIONS (19)
  - Hepatic mass [Unknown]
  - Pain [Not Recovered/Not Resolved]
  - Headache [Unknown]
  - Weight decreased [Not Recovered/Not Resolved]
  - Hypertension [Unknown]
  - Decreased appetite [Not Recovered/Not Resolved]
  - Pain in extremity [Not Recovered/Not Resolved]
  - Deafness [Unknown]
  - Ascites [Not Recovered/Not Resolved]
  - Skin lesion [Not Recovered/Not Resolved]
  - Skin lesion [Recovered/Resolved]
  - General physical health deterioration [Not Recovered/Not Resolved]
  - Abdominal pain upper [Recovered/Resolved]
  - Erythema [Recovered/Resolved]
  - Unevaluable event [Recovered/Resolved]
  - Erythema [Not Recovered/Not Resolved]
  - Ascites [Unknown]
  - Decreased activity [Not Recovered/Not Resolved]
  - Abdominal distension [Not Recovered/Not Resolved]

NARRATIVE: CASE EVENT DATE: 201702
